FAERS Safety Report 7657310-4 (Version None)
Quarter: 2011Q3

REPORT INFORMATION
  Report Type: 
  Country: None (occurrence: None)
  Receive Date: 20110804
  Receipt Date: 20110725
  Transmission Date: 20111222
  Serious: Yes (Hospitalization)
  Sender: FDA-Public Use
  Company Number: PHHY2011US67710

PATIENT
  Sex: Male
  Weight: 66 kg

DRUGS (1)
  1. EXJADE [Suspect]
     Indication: THALASSAEMIA
     Dosage: 2000 MG, DAILY
     Route: 048
     Dates: start: 20070908

REACTIONS (1)
  - LOWER LIMB FRACTURE [None]
